FAERS Safety Report 18525839 (Version 1)
Quarter: 2020Q4

REPORT INFORMATION
  Report Type: Spontaneous
  Country: US (occurrence: US)
  Receive Date: 20201120
  Receipt Date: 20201120
  Transmission Date: 20210114
  Serious: Yes (Hospitalization, Other)
  Sender: FDA-Public Use
  Company Number: US-DRREDDYS-USA/USA/20/0129178

PATIENT
  Age: 23 Year
  Sex: Male

DRUGS (2)
  1. ZIPRASIDONE. [Interacting]
     Active Substance: ZIPRASIDONE
  2. ZIPRASIDONE. [Suspect]
     Active Substance: ZIPRASIDONE
     Indication: SCHIZOPHRENIA
     Dosage: PILL

REACTIONS (7)
  - Food interaction [Recovered/Resolved]
  - Hallucination, auditory [Recovered/Resolved]
  - Condition aggravated [Recovered/Resolved]
  - Paranoia [Recovered/Resolved]
  - Psychotic disorder [Recovered/Resolved]
  - Overdose [Recovered/Resolved]
  - Delusion [Recovered/Resolved]
